FAERS Safety Report 25272825 (Version 1)
Quarter: 2025Q2

REPORT INFORMATION
  Report Type: Spontaneous
  Country: GR (occurrence: GR)
  Receive Date: 20250506
  Receipt Date: 20250506
  Transmission Date: 20250717
  Serious: Yes (Other)
  Sender: AZURITY PHARMACEUTICALS
  Company Number: GR-AZURITY PHARMACEUTICALS, INC.-AZR202504-001183

PATIENT
  Age: 46 Year
  Sex: Female

DRUGS (1)
  1. METHYLPREDNISOLONE ACETATE [Suspect]
     Active Substance: METHYLPREDNISOLONE ACETATE
     Indication: Multiple sclerosis
     Dosage: 1 GRAM, DAILY FOR 5 DAYS
     Route: 042

REACTIONS (1)
  - Drug-induced liver injury [Recovered/Resolved]
